FAERS Safety Report 13848862 (Version 2)
Quarter: 2017Q3

REPORT INFORMATION
  Report Type: Spontaneous
  Country: HR (occurrence: HR)
  Receive Date: 20170809
  Receipt Date: 20170810
  Transmission Date: 20171127
  Serious: Yes (Hospitalization)
  Sender: FDA-Public Use
  Company Number: HR-009507513-1708HRV001963

PATIENT
  Age: 63 Year
  Sex: Male

DRUGS (5)
  1. CANESTEN [Suspect]
     Active Substance: CLOTRIMAZOLE
     Indication: LOCALISED INFECTION
  2. AMLODIPINE BESYLATE (+) ATORVASTATIN CALCIUM (+) PERINDOPRIL ARGININE [Concomitant]
     Indication: HYPERTENSION
     Dosage: 0.0.1;1 DF - 20 MG ATORVASTATIN + 10 MG PERINDOPRIL ARGININE + 5 MG AMLODIPINE
     Route: 048
  3. ASPIRIN. [Concomitant]
     Active Substance: ASPIRIN
     Dosage: 1XQ
     Route: 048
  4. MISAR [Concomitant]
     Dosage: PP
     Route: 048
  5. TRIDERM [Suspect]
     Active Substance: TRIAMCINOLONE ACETONIDE
     Indication: LOCALISED INFECTION
     Dosage: UNK UNK, QD
     Route: 062
     Dates: end: 20170622

REACTIONS (5)
  - Paraesthesia [Unknown]
  - Skin burning sensation [Unknown]
  - Paraesthesia [Unknown]
  - Skin infection [Unknown]
  - Dry skin [Unknown]

NARRATIVE: CASE EVENT DATE: 20170622
